FAERS Safety Report 4370899-6 (Version None)
Quarter: 2004Q2

REPORT INFORMATION
  Report Type: 
  Country: None (occurrence: None)
  Receive Date: 20040601
  Receipt Date: 20040518
  Transmission Date: 20050107
  Serious: Yes (Hospitalization)
  Sender: FDA-Public Use
  Company Number: CERZ-10566

PATIENT
  Age: 19 Month
  Weight: 6.9 kg

DRUGS (1)
  1. CEREZYME [Suspect]
     Indication: GAUCHER'S DISEASE
     Dosage: 1200 UNITS Q2WKS IV
     Route: 042
     Dates: start: 20030729

REACTIONS (11)
  - ASPARTATE AMINOTRANSFERASE INCREASED [None]
  - BLOOD CREATINE PHOSPHOKINASE INCREASED [None]
  - BLOOD LACTATE DEHYDROGENASE INCREASED [None]
  - BLOOD URIC ACID INCREASED [None]
  - BONE MARROW DEPRESSION [None]
  - CARDIAC FAILURE [None]
  - CARDIOMEGALY [None]
  - DEHYDRATION [None]
  - EJECTION FRACTION DECREASED [None]
  - RENAL FAILURE [None]
  - VIRAL INFECTION [None]
